FAERS Safety Report 21983548 (Version 1)
Quarter: 2023Q1

REPORT INFORMATION
  Report Type: Spontaneous
  Country: US (occurrence: US)
  Receive Date: 20230213
  Receipt Date: 20230213
  Transmission Date: 20230418
  Serious: No
  Sender: FDA-Public Use
  Company Number: US-GLENMARK PHARMACEUTICALS-2022GMK073497

PATIENT

DRUGS (1)
  1. MUPIROCIN [Suspect]
     Active Substance: MUPIROCIN
     Indication: Preoperative care
     Dosage: UNK (TO BE APPLIED TO HIS NOSTRILS FOR 5 DAYS BEFORE HIS SURGERY)
     Route: 045

REACTIONS (2)
  - Incorrect route of product administration [Unknown]
  - Product use in unapproved indication [Unknown]
